FAERS Safety Report 7755463-0 (Version None)
Quarter: 2011Q3

REPORT INFORMATION
  Report Type: 
  Country: None (occurrence: None)
  Receive Date: 20110916
  Receipt Date: 20110913
  Transmission Date: 20111222
  Serious: Yes (Other)
  Sender: FDA-Public Use
  Company Number: US-PFIZER INC-2011189628

PATIENT
  Sex: Male
  Weight: 90.703 kg

DRUGS (2)
  1. LIPITOR [Suspect]
     Indication: BLOOD CHOLESTEROL ABNORMAL
     Dosage: 40 MG, DAILY
     Route: 048
     Dates: start: 20110808, end: 20110814
  2. EXFORGE HCT [Concomitant]
     Indication: BLOOD PRESSURE ABNORMAL
     Dosage: [AMLODIPINE 5MG] / [VALSARTAN 160MG] / [HYDROCHLOROTHIAZIDE 12.5MG], DAILY
     Route: 048

REACTIONS (5)
  - PAIN [None]
  - ABASIA [None]
  - MUSCLE INJURY [None]
  - MYALGIA [None]
  - FEELING ABNORMAL [None]
